FAERS Safety Report 4510845-5 (Version None)
Quarter: 2004Q4

REPORT INFORMATION
  Report Type: 
  Country: None (occurrence: None)
  Receive Date: 20041025
  Receipt Date: 20031209
  Transmission Date: 20050328
  Serious: Yes (Other)
  Sender: FDA-Public Use
  Company Number: NSADSS2003008146

PATIENT
  Age: 57 Year
  Sex: Male
  Weight: 68.0396 kg

DRUGS (6)
  1. REMICADE (INFLIXIMAB, RECOMBINANT) LYOPHILIZIDE POWDER [Suspect]
     Indication: CROHN'S DISEASE
     Dosage: SEE IMAGE
     Route: 041
     Dates: start: 20021223
  2. REMICADE (INFLIXIMAB, RECOMBINANT) LYOPHILIZIDE POWDER [Suspect]
     Indication: CROHN'S DISEASE
     Dosage: SEE IMAGE
     Route: 041
     Dates: start: 20030205
  3. REMICADE (INFLIXIMAB, RECOMBINANT) LYOPHILIZIDE POWDER [Suspect]
  4. IMURAN [Concomitant]
  5. CIPRO [Concomitant]
  6. ALTACE [Concomitant]

REACTIONS (3)
  - CONFUSIONAL STATE [None]
  - DEMYELINATION [None]
  - IMPULSIVE BEHAVIOUR [None]
